FAERS Safety Report 4425400-5 (Version None)
Quarter: 2004Q3

REPORT INFORMATION
  Report Type: 
  Country: None (occurrence: None)
  Receive Date: 20040813
  Receipt Date: 20040707
  Transmission Date: 20050211
  Serious: Yes (Disabling)
  Sender: FDA-Public Use
  Company Number: FR-GLAXOSMITHKLINE-B0338620A

PATIENT
  Age: 35 Year
  Sex: Male

DRUGS (5)
  1. TRIZIVIR [Suspect]
     Indication: HIV INFECTION
     Dosage: 1TAB TWICE PER DAY
     Route: 048
     Dates: start: 20040406, end: 20040711
  2. BACTRIM [Concomitant]
     Indication: CHEST X-RAY ABNORMAL
     Route: 048
     Dates: start: 20040614, end: 20040621
  3. PENTAMIDINE [Concomitant]
     Route: 055
  4. REYATAZ [Concomitant]
     Indication: HIV INFECTION
     Route: 048
     Dates: start: 20040406
  5. RITONAVIR [Concomitant]
     Indication: HIV INFECTION
     Route: 048

REACTIONS (7)
  - BURNING SENSATION [None]
  - DRUG HYPERSENSITIVITY [None]
  - FOLLICULITIS [None]
  - MUSCULOSKELETAL STIFFNESS [None]
  - OEDEMA [None]
  - PAIN [None]
  - SKIN LESION [None]
